FAERS Safety Report 24437716 (Version 1)
Quarter: 2024Q4

REPORT INFORMATION
  Report Type: Spontaneous
  Country: FR (occurrence: FR)
  Receive Date: 20241015
  Receipt Date: 20241015
  Transmission Date: 20250114
  Serious: Yes (Hospitalization)
  Sender: BAXTER
  Company Number: None

PATIENT
  Age: 21 Year
  Sex: Female
  Weight: 60 kg

DRUGS (1)
  1. SCOPOLAMINE [Suspect]
     Active Substance: SCOPOLAMINE
     Indication: Rales
     Dosage: 1 MG/ 72 HOURS, TRANSDERMAL PATCH, DOSAGE TEXT: 1 PATCH/3 DAYS, DURATION: 3 DAYS
     Route: 062
     Dates: start: 20240919, end: 20240922

REACTIONS (2)
  - Eye disorder [Recovered/Resolved]
  - Mydriasis [Recovered/Resolved]

NARRATIVE: CASE EVENT DATE: 20240919
